FAERS Safety Report 4538907-7 (Version None)
Quarter: 2004Q4

REPORT INFORMATION
  Report Type: 
  Country: None (occurrence: None)
  Receive Date: 20041222
  Receipt Date: 20041207
  Transmission Date: 20050328
  Serious: Yes (Life-Threatening, Hospitalization)
  Sender: FDA-Public Use
  Company Number: US_0412108909

PATIENT
  Age: 17 Year
  Sex: Male

DRUGS (2)
  1. ZYPREXA [Suspect]
     Indication: PSYCHOTIC DISORDER
     Dosage: 10 MG DAY
  2. DIVALPROEX SODIUM [Concomitant]

REACTIONS (25)
  - ABNORMAL BEHAVIOUR [None]
  - BLOOD CREATINE PHOSPHOKINASE INCREASED [None]
  - BLOOD PRESSURE SYSTOLIC INCREASED [None]
  - BLUNTED AFFECT [None]
  - BODY TEMPERATURE INCREASED [None]
  - CATATONIA [None]
  - DELUSION [None]
  - DEPRESSED LEVEL OF CONSCIOUSNESS [None]
  - ENCEPHALITIS HERPES [None]
  - FEAR [None]
  - HEART RATE INCREASED [None]
  - HYPERHIDROSIS [None]
  - HYPERVIGILANCE [None]
  - MANIA [None]
  - MUSCLE RIGIDITY [None]
  - MUTISM [None]
  - NEUROLEPTIC MALIGNANT SYNDROME [None]
  - PARANOIA [None]
  - PHAGOPHOBIA [None]
  - PSYCHOMOTOR RETARDATION [None]
  - PSYCHOTIC DISORDER [None]
  - RESPIRATORY RATE INCREASED [None]
  - SEDATION [None]
  - UNRESPONSIVE TO VERBAL STIMULI [None]
  - WAXY FLEXIBILITY [None]
